FAERS Safety Report 17614762 (Version 1)
Quarter: 2020Q1

REPORT INFORMATION
  Report Type: Spontaneous
  Country: US (occurrence: US)
  Receive Date: 20200331
  Receipt Date: 20200331
  Transmission Date: 20200409
  Serious: Yes (Hospitalization)
  Sender: FDA-Public Use
  Company Number: None

PATIENT
  Age: 55 Year
  Sex: Female

DRUGS (22)
  1. CHLORHEX GLU [Concomitant]
  2. CIPROFLOXACIN. [Concomitant]
     Active Substance: CIPROFLOXACIN
  3. FLORANEX [Concomitant]
     Active Substance: LACTOBACILLUS ACIDOPHILUS\LACTOBACILLUS DELBRUECKII SUBSP. BULGARICUS
  4. AZITHROMYCIN ANHYDROUS. [Concomitant]
     Active Substance: AZITHROMYCIN ANHYDROUS
  5. FAMOTIDINE. [Concomitant]
     Active Substance: FAMOTIDINE
  6. SERTRALINE [Concomitant]
     Active Substance: SERTRALINE HYDROCHLORIDE
  7. ALBURTEROL NEB [Concomitant]
  8. APAP/CODEINE [Concomitant]
     Active Substance: ACETAMINOPHEN\CODEINE PHOSPHATE
  9. BREO ELLIPTA [Concomitant]
     Active Substance: FLUTICASONE FUROATE\VILANTEROL TRIFENATATE
  10. DIGOXIN. [Concomitant]
     Active Substance: DIGOXIN
  11. METOLAZONE. [Concomitant]
     Active Substance: METOLAZONE
  12. POT CHLORIDE [Concomitant]
     Active Substance: POTASSIUM CHLORIDE
  13. FIRVANQ [Concomitant]
     Active Substance: VANCOMYCIN HYDROCHLORIDE
  14. MONTELUKAST [Concomitant]
     Active Substance: MONTELUKAST SODIUM
  15. ADEMPAS [Concomitant]
     Active Substance: RIOCIGUAT
  16. CEFDINIR. [Concomitant]
     Active Substance: CEFDINIR
  17. SPIRONOLACT [Concomitant]
     Active Substance: SPIRONOLACTONE
  18. AMBRISENTAN 10MG TAB [Suspect]
     Active Substance: AMBRISENTAN
     Indication: PULMONARY ARTERIAL HYPERTENSION
     Route: 048
     Dates: start: 20170707
  19. AMOX/K CLAV [Concomitant]
     Active Substance: AMOXICILLIN\CLAVULANATE POTASSIUM
  20. AMOXICILLIN. [Concomitant]
     Active Substance: AMOXICILLIN
  21. CETRIZINE [Concomitant]
     Active Substance: CETIRIZINE HYDROCHLORIDE
  22. FUROSEMIDE. [Concomitant]
     Active Substance: FUROSEMIDE

REACTIONS (1)
  - Pneumonia [None]

NARRATIVE: CASE EVENT DATE: 20200327
